FAERS Safety Report 9399279 (Version 2)
Quarter: 2013Q3

REPORT INFORMATION
  Report Type: Spontaneous
  Country: US (occurrence: US)
  Receive Date: 20130715
  Receipt Date: 20130809
  Transmission Date: 20140515
  Serious: No
  Sender: FDA-Public Use
  Company Number: US-PFIZER INC-2013204112

PATIENT
  Age: 44 Year
  Sex: Male

DRUGS (6)
  1. XELJANZ [Suspect]
     Indication: RHEUMATOID ARTHRITIS
     Dosage: 5 MG, 2X/DAY
     Route: 048
     Dates: start: 20130504
  2. XELJANZ [Suspect]
     Indication: RHEUMATOID ARTHRITIS
  3. LORTAB [Concomitant]
     Indication: PAIN
     Dosage: 7.5 MG, AS NEEDED (1-2 Q 6 HRS PRN)
     Dates: start: 2005
  4. ZOLPIDEM [Concomitant]
     Indication: INSOMNIA
     Dosage: 10 MG, 1X/DAY (10 MG HS)
     Dates: start: 2005
  5. LIPITOR [Concomitant]
     Indication: BLOOD CHOLESTEROL INCREASED
     Dosage: 10 UNK, 1X/DAY (Q.D)
     Dates: start: 2010
  6. METOPROLOL [Concomitant]
     Indication: HYPERTENSION
     Dosage: 3 UNK, 1X/DAY (3 DAILY)
     Dates: start: 2009

REACTIONS (1)
  - Sinusitis [Recovered/Resolved with Sequelae]
